FAERS Safety Report 6697643-1 (Version None)
Quarter: 2010Q2

REPORT INFORMATION
  Report Type: 
  Country: None (occurrence: None)
  Receive Date: 20100423
  Receipt Date: 20100201
  Transmission Date: 20101027
  Serious: Yes (Other)
  Sender: FDA-Public Use
  Company Number: APP201000068

PATIENT
  Age: 22 Year
  Sex: Female
  Weight: 57 kg

DRUGS (10)
  1. HEPARIN SODIUM INJECTION [Suspect]
     Indication: THROMBOSIS PROPHYLAXIS
     Dosage: 5000 USP UNITS, 2 IN 1 D, SUBCUTANEOUS
     Route: 058
     Dates: start: 20100112
  2. E5564/PLACEBO [Suspect]
     Indication: SEPSIS
     Dosage: SEE IMAGE
     Route: 042
     Dates: start: 20100113, end: 20100113
  3. E5564/PLACEBO [Suspect]
     Indication: SEPSIS
     Dosage: SEE IMAGE
     Route: 042
     Dates: start: 20100113, end: 20100113
  4. E5564/PLACEBO [Suspect]
     Indication: SEPSIS
     Dosage: SEE IMAGE
     Route: 042
     Dates: start: 20100114, end: 20100118
  5. RANITIDINE [Suspect]
     Indication: STRESS ULCER
     Dosage: 50 MG, 3 IN 1 D, INTRAVENOUS
     Route: 042
     Dates: start: 20100112
  6. VANCOMYCIN [Concomitant]
  7. PIPERACILLIN AND TAZOBACTAM [Concomitant]
  8. FENTANYL [Concomitant]
  9. METOCLOPRAMIDE (METOCLOPRAMISE HYDROCHLORIDE) [Concomitant]
  10. ONDASETRON (ONDAASETRON) [Concomitant]

REACTIONS (11)
  - ACUTE RESPIRATORY FAILURE [None]
  - ANURIA [None]
  - LETHARGY [None]
  - MULTI-ORGAN FAILURE [None]
  - NEPHROLITHIASIS [None]
  - PANCREATITIS [None]
  - RENAL FAILURE ACUTE [None]
  - SEPTIC SHOCK [None]
  - TACHYCARDIA [None]
  - TACHYPNOEA [None]
  - THROMBOCYTOPENIA [None]
